FAERS Safety Report 19552382 (Version 6)
Quarter: 2021Q4

REPORT INFORMATION
  Report Type: Spontaneous
  Country: US (occurrence: None)
  Receive Date: 20210715
  Receipt Date: 20211102
  Transmission Date: 20220303
  Serious: Yes (Life-Threatening, Other)
  Sender: FDA-Public Use
  Company Number: US-ROCHE-2868908

PATIENT
  Age: 71 Year
  Sex: Female
  Weight: 77.180 kg

DRUGS (13)
  1. XOLAIR [Suspect]
     Active Substance: OMALIZUMAB
     Indication: Chronic spontaneous urticaria
     Dosage: XOLAIR INJECTION TAKEN ON 21/MAY/2021, 18/JUN/2021, 21/JUL/2021, 11/AUG/2021, 10/SEP/2021
     Route: 058
     Dates: start: 20210502
  2. XOLAIR [Suspect]
     Active Substance: OMALIZUMAB
     Dosage: ARM INJECTION
     Route: 058
     Dates: start: 20210521
  3. MINERALS\VITAMINS [Suspect]
     Active Substance: MINERALS\VITAMINS
     Indication: Product used for unknown indication
     Route: 065
  4. TOBRAMYCIN [Concomitant]
     Active Substance: TOBRAMYCIN
  5. MYRBETRIQ [Concomitant]
     Active Substance: MIRABEGRON
  6. BENADRYL GEL [Concomitant]
     Active Substance: DIPHENHYDRAMINE HYDROCHLORIDE
  7. AVEENO [Concomitant]
     Active Substance: DIMETHICONE\HOMOSALATE\OCTINOXATE\OCTISALATE\TITANIUM DIOXIDE
  8. CERAVE [Concomitant]
  9. ZYRTEC [Concomitant]
     Active Substance: CETIRIZINE HYDROCHLORIDE
  10. PREVACID [Concomitant]
     Active Substance: LANSOPRAZOLE
     Dates: start: 20210820
  11. PREVACID [Concomitant]
     Active Substance: LANSOPRAZOLE
     Dates: start: 20210831
  12. PREVACID [Concomitant]
     Active Substance: LANSOPRAZOLE
  13. TOPROL XL [Concomitant]
     Active Substance: METOPROLOL SUCCINATE

REACTIONS (5)
  - Hysterectomy [Unknown]
  - Uterine cancer [Unknown]
  - Mass [Unknown]
  - Pruritus [Recovering/Resolving]
  - Drug ineffective [Unknown]

NARRATIVE: CASE EVENT DATE: 20210601
